FAERS Safety Report 5381085-5 (Version None)
Quarter: 2007Q3

REPORT INFORMATION
  Report Type: 
  Country: None (occurrence: None)
  Receive Date: 20070706
  Receipt Date: 20070626
  Transmission Date: 20080115
  Serious: Yes (Other)
  Sender: FDA-Public Use
  Company Number: US-PFIZER INC-2007029114

PATIENT
  Sex: Male
  Weight: 78.9 kg

DRUGS (5)
  1. CHANTIX [Suspect]
     Indication: SMOKING CESSATION THERAPY
     Dates: start: 20070201, end: 20070405
  2. CHANTIX [Interacting]
     Indication: EX-SMOKER
  3. ADDERALL XR 10 [Interacting]
     Indication: DISTURBANCE IN ATTENTION
  4. ADDERALL XR 10 [Interacting]
     Indication: ATTENTION DEFICIT/HYPERACTIVITY DISORDER
  5. MULTIVITAMIN [Concomitant]

REACTIONS (7)
  - DEPRESSION [None]
  - DRUG INTERACTION [None]
  - FEELING ABNORMAL [None]
  - MOOD SWINGS [None]
  - NAUSEA [None]
  - OBSESSIVE-COMPULSIVE DISORDER [None]
  - VOMITING [None]
